FAERS Safety Report 7454653-4 (Version None)
Quarter: 2011Q2

REPORT INFORMATION
  Report Type: 
  Country: None (occurrence: None)
  Receive Date: 20110503
  Receipt Date: 20100409
  Transmission Date: 20111010
  Serious: Yes (Other)
  Sender: FDA-Public Use
  Company Number: US-PFIZER INC-2010047051

PATIENT
  Age: 21 Year
  Sex: Female
  Weight: 72.56 kg

DRUGS (2)
  1. DEPO-PROVERA [Suspect]
     Indication: MENORRHAGIA
     Dosage: SINGLE INJECTION
     Route: 030
     Dates: start: 20091001
  2. DEPO-PROVERA [Suspect]
     Indication: DYSMENORRHOEA

REACTIONS (2)
  - AMENORRHOEA [None]
  - ANXIETY [None]
